FAERS Safety Report 16267441 (Version 1)
Quarter: 2019Q2

REPORT INFORMATION
  Report Type: Spontaneous
  Country: FR (occurrence: FR)
  Receive Date: 20190503
  Receipt Date: 20190503
  Transmission Date: 20190711
  Serious: Yes (Hospitalization)
  Sender: FDA-Public Use
  Company Number: FR-TEVA-2019-FR-1044249

PATIENT
  Age: 56 Year
  Sex: Female
  Weight: 52 kg

DRUGS (15)
  1. OROZAMUDOL [Concomitant]
     Active Substance: TRAMADOL
  2. DEBRIDAT [Concomitant]
     Active Substance: TRIMEBUTINE MALEATE
  3. MOTILIUM [Concomitant]
     Active Substance: DOMPERIDONE
  4. LEVOTHYROX [Concomitant]
     Active Substance: LEVOTHYROXINE
  5. DOLIPRANE [Concomitant]
     Active Substance: ACETAMINOPHEN
  6. SMOFKABIVEN [Concomitant]
     Active Substance: AMINO ACIDS\DEXTROSE\ELECTROLYTES NOS\SOYBEAN OIL
  7. CERNEVIT [Concomitant]
     Active Substance: VITAMINS
  8. SPASFON [Concomitant]
  9. IMOVANE [Concomitant]
     Active Substance: ZOPICLONE
  10. FUROSEMIDE. [Suspect]
     Active Substance: FUROSEMIDE
     Indication: INTENTIONAL PRODUCT MISUSE
     Route: 048
  11. RELPAX [Concomitant]
     Active Substance: ELETRIPTAN HYDROBROMIDE
  12. DULCOLAX (BISACODYL) [Suspect]
     Active Substance: BISACODYL
     Indication: INTENTIONAL PRODUCT MISUSE
     Route: 054
  13. DULCOLAX NOS [Suspect]
     Active Substance: BISACODYL OR DOCUSATE SODIUM
     Indication: INTENTIONAL PRODUCT MISUSE
     Route: 048
  14. DIFFU K [Concomitant]
     Active Substance: POTASSIUM CHLORIDE
  15. NUTRYELT [Concomitant]
     Active Substance: IRON\MINERALS\POTASSIUM IOD\SODIUM FLUORIDE\SODIUM MOLYBDATE\SODIUM SELENITE\ZINC

REACTIONS (3)
  - Intentional product misuse [Not Recovered/Not Resolved]
  - Torsade de pointes [Recovered/Resolved]
  - Hypokalaemia [Recovering/Resolving]

NARRATIVE: CASE EVENT DATE: 2019
